FAERS Safety Report 7194352-X (Version None)
Quarter: 2010Q4

REPORT INFORMATION
  Report Type: 
  Country: None (occurrence: None)
  Receive Date: 20101223
  Receipt Date: 20101213
  Transmission Date: 20110411
  Serious: Yes (Hospitalization)
  Sender: FDA-Public Use
  Company Number: JP-ELI_LILLY_AND_COMPANY-JP201011005377

PATIENT
  Age: 74 Year
  Sex: Male

DRUGS (6)
  1. CYMBALTA [Suspect]
     Indication: DEPRESSION
     Dosage: 20 MG, DAILY (1/D)
     Route: 048
     Dates: start: 20101015
  2. CYMBALTA [Suspect]
     Dosage: UNK, DAILY (1/D)
     Route: 048
     Dates: end: 20101123
  3. LORAZEPAM [Concomitant]
     Dosage: 1 MG, DAILY (1/D)
     Route: 048
  4. GOODMIN [Concomitant]
     Dosage: 0.25 MG, DAILY (1/D)
     Route: 048
  5. DEPAS [Concomitant]
     Dosage: 1 MG, DAILY (1/D)
     Route: 048
  6. HALTHROW [Concomitant]
     Dosage: 0.2 MG, DAILY (1/D)

REACTIONS (1)
  - PANCYTOPENIA [None]
